FAERS Safety Report 5713714-8 (Version None)
Quarter: 2008Q2

REPORT INFORMATION
  Report Type: 
  Country: None (occurrence: None)
  Receive Date: 20080418
  Receipt Date: 20080409
  Transmission Date: 20081010
  Serious: Yes (Hospitalization)
  Sender: FDA-Public Use
  Company Number: GXKR2008TR03473

PATIENT
  Age: 24 Year
  Sex: Female

DRUGS (1)
  1. DICLOFENAC SODIUM [Suspect]
     Indication: PUBIC PAIN
     Dosage: INTRAMUSCULAR
     Route: 030

REACTIONS (10)
  - BACTERIAL INFECTION [None]
  - BLOOD BLISTER [None]
  - DEBRIDEMENT [None]
  - INJECTION SITE NECROSIS [None]
  - MUSCULOSKELETAL PAIN [None]
  - NECROTISING FASCIITIS [None]
  - PURULENT DISCHARGE [None]
  - PYREXIA [None]
  - SWELLING [None]
  - TACHYCARDIA [None]
